FAERS Safety Report 9996058 (Version 1)
Quarter: 2014Q1

REPORT INFORMATION
  Report Type: Spontaneous
  Country: US (occurrence: None)
  Receive Date: 20140218
  Receipt Date: 20140218
  Transmission Date: 20141002
  Serious: Yes (Other)
  Sender: FDA-Public Use
  Company Number: 1000052897

PATIENT
  Age: 60 Year
  Sex: Female

DRUGS (7)
  1. VIIBRYD [Suspect]
     Indication: DEPRESSION
     Route: 048
     Dates: start: 20140112, end: 20140114
  2. VIIBRYD [Suspect]
     Indication: ANXIETY
     Route: 048
     Dates: start: 20140112, end: 20140114
  3. AMTRIPTYLINE (AMITRIPTYLINE) (AMITRIPTYLINE) [Concomitant]
  4. CLONAZEPAM (CLONAZEPAM) (CLONAZEPAM) [Concomitant]
  5. TIROSINT (LEVOTHYROXINE SODIUM) (LEVOTHYROXINE SODIUM) [Concomitant]
  6. CYTOMEL (LITHYRONINE SODIUM) (LIOTHYRONINE SODIUM) [Concomitant]
  7. CURCUMIN (CURCUMIN) (CURCUMIN) [Concomitant]

REACTIONS (3)
  - Dizziness [None]
  - Agitation [None]
  - Depression [None]
